FAERS Safety Report 4766609-0 (Version None)
Quarter: 2005Q3

REPORT INFORMATION
  Report Type: 
  Country: None (occurrence: None)
  Receive Date: 20050908
  Receipt Date: 20050826
  Transmission Date: 20060218
  Serious: Yes (Disabling, Other)
  Sender: FDA-Public Use
  Company Number: 2005120735

PATIENT
  Sex: Female
  Weight: 61.2356 kg

DRUGS (7)
  1. NEURONTIN [Suspect]
     Indication: NEUROPATHY
     Dosage: 1800 MG (600 MG, 3 IN 1 D), ORAL
     Route: 048
     Dates: start: 20010101
  2. LANTUS [Concomitant]
  3. NOVOLOG [Concomitant]
  4. XANAX XR [Concomitant]
  5. PERCOCET [Concomitant]
  6. PROMETHAZINE [Concomitant]
  7. ZYRTEC [Concomitant]

REACTIONS (8)
  - CHOLECYSTECTOMY [None]
  - CONDITION AGGRAVATED [None]
  - DERMAL CYST [None]
  - DIABETES MELLITUS [None]
  - DISEASE PROGRESSION [None]
  - GANGLION [None]
  - IMMUNE SYSTEM DISORDER [None]
  - NEUROPATHY [None]
